FAERS Safety Report 9547502 (Version 1)
Quarter: 2013Q2

REPORT INFORMATION
  Report Type: Spontaneous
  Country: US (occurrence: None)
  Receive Date: 20130606
  Receipt Date: 20130606
  Transmission Date: 20140414
  Serious: No
  Sender: FDA-Public Use
  Company Number: 163-POMAL-13050793

PATIENT
  Age: 63 Year
  Sex: Male

DRUGS (6)
  1. POMALYST (POMALIDOMIDE) (4 MILLIGRAM, CAPSULES) [Suspect]
     Indication: PLASMA CELL MYELOMA
     Dosage: 4 MG, 21 IN 21 D, PO
     Route: 048
     Dates: start: 20130412
  2. ACYCLOVIR (ACICLOVIR) (ACICLOVIR) [Concomitant]
  3. ASPIRIN (ACETYLSALICYLIC ACID) [Concomitant]
  4. BACTRIM (BACTRIM) (SULFAMETHOXAZOLE, TRIMETHOPRIM) [Concomitant]
  5. DEXAMETHASONE (DEXAMETHASONE) [Concomitant]
  6. METOPROLOL-HYDROCHLOROTHIAZIDE (CO-BETALOC) [Concomitant]

REACTIONS (1)
  - Fatigue [None]
